FAERS Safety Report 15196686 (Version 1)
Quarter: 2018Q3

REPORT INFORMATION
  Report Type: Spontaneous
  Country: US (occurrence: US)
  Receive Date: 20180725
  Receipt Date: 20180725
  Transmission Date: 20181010
  Serious: Yes (Hospitalization)
  Sender: FDA-Public Use
  Company Number: US-JNJFOC-20180728635

PATIENT
  Age: 52 Year
  Sex: Male

DRUGS (1)
  1. INVOKANA [Suspect]
     Active Substance: CANAGLIFLOZIN
     Indication: TYPE 2 DIABETES MELLITUS
     Route: 048
     Dates: start: 20150328

REACTIONS (4)
  - Cellulitis [Recovering/Resolving]
  - Skin ulcer [Recovering/Resolving]
  - Osteomyelitis [Recovering/Resolving]
  - Foot amputation [Unknown]

NARRATIVE: CASE EVENT DATE: 20160823
